FAERS Safety Report 20544695 (Version 4)
Quarter: 2022Q1

REPORT INFORMATION
  Report Type: Report from Study
  Country: DE (occurrence: DE)
  Receive Date: 20220303
  Receipt Date: 20220331
  Transmission Date: 20220424
  Serious: Yes (Hospitalization, Other)
  Sender: FDA-Public Use
  Company Number: DE-CELLTRION INC.-2022DE002390

PATIENT

DRUGS (8)
  1. TRUXIMA [Suspect]
     Active Substance: RITUXIMAB-ABBS
     Indication: Marginal zone lymphoma
     Dosage: 375 MG/M2 (500 MG) STRENGTH, (ON DAY 1, EVERY SECOND CYCLE)
     Route: 042
     Dates: start: 20191218
  2. TRUXIMA [Suspect]
     Active Substance: RITUXIMAB-ABBS
     Dosage: 375 MG/M2 (100 MG) STRENGTH, (ON DAY 1, EVERY SECOND CYCLE)
     Route: 042
     Dates: start: 20191218
  3. TRUXIMA [Suspect]
     Active Substance: RITUXIMAB-ABBS
     Dosage: LAST ADMINISTRATION DATE OF RITUXIMAB PRIOR TO THE ADVERSE EVENT
     Dates: start: 20220125
  4. COPANLISIB [Suspect]
     Active Substance: COPANLISIB
     Indication: Marginal zone lymphoma
     Dosage: 60 MG (ON 1,15 EVERY CYCLE)
     Route: 042
     Dates: start: 20191218, end: 20200721
  5. COPANLISIB [Suspect]
     Active Substance: COPANLISIB
     Dosage: 45 MG (ON 1,15 EVERY CYCLE)
     Route: 042
     Dates: start: 20200804
  6. COPANLISIB [Suspect]
     Active Substance: COPANLISIB
     Dosage: 30 MG (ON 1,15 EVERY CYCLE)
     Route: 042
     Dates: start: 20210223
  7. COPANLISIB [Suspect]
     Active Substance: COPANLISIB
     Dosage: LAST ADMINISTRATION DATE OF COPANLISIB PRIOR TO THE ADVERSE EVENT
     Dates: start: 20210601
  8. ENOXAPARIN [Concomitant]
     Active Substance: ENOXAPARIN
     Indication: Thrombosis prophylaxis
     Dosage: 0,4 ML 0-0-1
     Dates: start: 20220222, end: 20220225

REACTIONS (2)
  - COVID-19 [Recovering/Resolving]
  - Off label use [Unknown]

NARRATIVE: CASE EVENT DATE: 20220221
